FAERS Safety Report 5397638-4 (Version None)
Quarter: 2007Q3

REPORT INFORMATION
  Report Type: 
  Country: None (occurrence: None)
  Receive Date: 20070723
  Receipt Date: 20070723
  Transmission Date: 20080115
  Serious: Yes (Life-Threatening, Hospitalization, Disabling, Other)
  Sender: FDA-Public Use
  Company Number: None

PATIENT
  Age: 68 Year
  Sex: Male
  Weight: 80.7403 kg

DRUGS (1)
  1. TRASYLOL [Suspect]
     Indication: VASCULAR GRAFT
     Dosage: 200CC THEN 50 CC/HOUR EVERY HOUR
     Dates: start: 20061009, end: 20061009

REACTIONS (5)
  - CARDIAC FAILURE CONGESTIVE [None]
  - CARDIAC FIBRILLATION [None]
  - DIALYSIS [None]
  - PHARMACEUTICAL PRODUCT COMPLAINT [None]
  - RENAL FAILURE [None]
